FAERS Safety Report 4512644-7 (Version None)
Quarter: 2004Q4

REPORT INFORMATION
  Report Type: 
  Country: None (occurrence: None)
  Receive Date: 20041008
  Receipt Date: 20040707
  Transmission Date: 20050328
  Serious: Yes (Other)
  Sender: FDA-Public Use
  Company Number: 2004S1000149

PATIENT
  Age: 67 Year
  Sex: Female
  Weight: 113 kg

DRUGS (17)
  1. CUBICIN [Suspect]
     Indication: STAPHYLOCOCCAL BACTERAEMIA
     Dosage: 500 MG;Q24H;IV
     Route: 042
     Dates: start: 20040628, end: 20040704
  2. GLIPIZIDE [Concomitant]
  3. TOPROL-XL [Concomitant]
  4. LASIX [Concomitant]
  5. SYNTHROID [Concomitant]
  6. PROTONIX [Concomitant]
  7. LOVENOX [Concomitant]
  8. ASPIRIN [Concomitant]
  9. DOPAMINE HCL [Concomitant]
  10. MAGNESIUM SULFATE [Concomitant]
  11. MORPHINE SULFATE [Concomitant]
  12. DEMEROL [Concomitant]
  13. PERCOCET [Concomitant]
  14. VANCOMYCIN [Concomitant]
  15. AMIKACIN [Concomitant]
  16. LEVAQUIN [Concomitant]
  17. PRIMAXIN [Concomitant]

REACTIONS (1)
  - RENAL FAILURE ACUTE [None]
